FAERS Safety Report 9247834 (Version 5)
Quarter: 2014Q1

REPORT INFORMATION
  Report Type: Spontaneous
  Country: DK (occurrence: DK)
  Receive Date: 20130423
  Receipt Date: 20140123
  Transmission Date: 20141002
  Serious: Yes (Life-Threatening, Hospitalization)
  Sender: FDA-Public Use
  Company Number: DK-JNJFOC-20130409690

PATIENT
  Age: 48 Year
  Sex: Female
  Weight: 78 kg

DRUGS (3)
  1. SIMPONI [Suspect]
     Indication: RHEUMATOID ARTHRITIS
     Route: 058
     Dates: end: 20130405
  2. SIMPONI [Suspect]
     Indication: RHEUMATOID ARTHRITIS
     Route: 058
     Dates: start: 20111101
  3. METHOTREXATE [Concomitant]
     Indication: RHEUMATOID ARTHRITIS
     Route: 065
     Dates: start: 20100310, end: 20130405

REACTIONS (6)
  - Stress cardiomyopathy [Recovered/Resolved]
  - Cardiac failure [Recovered/Resolved]
  - Streptococcal sepsis [Recovered/Resolved]
  - Intensive care [Recovered/Resolved]
  - Pyrexia [Recovered/Resolved]
  - Diarrhoea [Recovered/Resolved]
